FAERS Safety Report 9711840 (Version 1)
Quarter: 2013Q4

REPORT INFORMATION
  Report Type: Spontaneous
  Country: US (occurrence: US)
  Receive Date: 20131126
  Receipt Date: 20131126
  Transmission Date: 20140711
  Serious: No
  Sender: FDA-Public Use
  Company Number: US-BRISTOL-MYERS SQUIBB COMPANY-19115914

PATIENT
  Age: 50 Year
  Sex: Male
  Weight: 110.29 kg

DRUGS (3)
  1. BYDUREON [Suspect]
     Indication: TYPE 2 DIABETES MELLITUS
     Route: 058
     Dates: start: 201302, end: 2013
  2. LANTUS [Concomitant]
  3. INSULIN [Concomitant]
     Dosage: 20 UNITS INJ/SQ QD TAKEN INFREQUENTLY WITH BYDUREON BY PATIENT

REACTIONS (2)
  - Injection site nodule [Not Recovered/Not Resolved]
  - Glycosylated haemoglobin increased [Unknown]
